FAERS Safety Report 19514075 (Version 1)
Quarter: 2021Q3

REPORT INFORMATION
  Report Type: Spontaneous
  Country: CN (occurrence: CN)
  Receive Date: 20210709
  Receipt Date: 20210709
  Transmission Date: 20211014
  Serious: Yes (Hospitalization, Other)
  Sender: FDA-Public Use
  Company Number: CN-ASTRAZENECA-2021A593173

PATIENT
  Age: 70 Year
  Sex: Female
  Weight: 66 kg

DRUGS (7)
  1. MESALAZINE [Concomitant]
     Active Substance: MESALAMINE
     Route: 048
  2. ASPIRIN ENTERIC?COATED TABLETS [Suspect]
     Active Substance: ASPIRIN
     Indication: ANTIPLATELET THERAPY
     Route: 048
     Dates: start: 20210619, end: 20210619
  3. LOW?MOLECULAR?WEIGHT HEPARIN CALCIUM INJECTION [Suspect]
     Active Substance: HEPARIN CALCIUM
     Indication: ANTICOAGULATION DRUG LEVEL
     Dosage: 4100 IU BID
     Route: 058
     Dates: start: 20210619, end: 20210620
  4. ESOMEPRAZOLE SODIUM. [Concomitant]
     Active Substance: ESOMEPRAZOLE SODIUM
     Indication: ABDOMINAL DISCOMFORT
     Route: 058
  5. ROSUVASTATIN CALCIUM. [Concomitant]
     Active Substance: ROSUVASTATIN CALCIUM
     Indication: ARTERIOSCLEROSIS
     Dates: start: 20210619, end: 20210626
  6. TICAGRELOR. [Suspect]
     Active Substance: TICAGRELOR
     Indication: ANTIPLATELET THERAPY
     Route: 048
     Dates: start: 20210619, end: 20210619
  7. SODIUM CHLORIDE INJECTION [Concomitant]
     Active Substance: SODIUM CHLORIDE
     Route: 041
     Dates: start: 20210620, end: 20210620

REACTIONS (3)
  - Large intestinal ulcer haemorrhage [Unknown]
  - Inflammatory bowel disease [Unknown]
  - Haematochezia [Unknown]
